FAERS Safety Report 11569734 (Version 2)
Quarter: 2015Q4

REPORT INFORMATION
  Report Type: Spontaneous
  Country: US (occurrence: US)
  Receive Date: 20150929
  Receipt Date: 20151204
  Transmission Date: 20160304
  Serious: No
  Sender: FDA-Public Use
  Company Number: US-BAYER-2015-428853

PATIENT
  Age: 69 Year
  Sex: Female
  Weight: 86.16 kg

DRUGS (1)
  1. OXYTROL FOR WOMEN [Suspect]
     Active Substance: OXYBUTYNIN
     Indication: HYPERTONIC BLADDER
     Dosage: 1 DF, UNK
     Route: 061

REACTIONS (3)
  - Application site pruritus [Recovered/Resolved]
  - Product use issue [None]
  - Device use error [None]
